FAERS Safety Report 4661577-4 (Version None)
Quarter: 2005Q2

REPORT INFORMATION
  Report Type: 
  Country: None (occurrence: None)
  Receive Date: 20050513
  Receipt Date: 20050504
  Transmission Date: 20051028
  Serious: Yes (Life-Threatening, Hospitalization, Disabling)
  Sender: FDA-Public Use
  Company Number: US-MERCK-0505USA00669

PATIENT
  Age: 69 Year
  Sex: Male

DRUGS (2)
  1. ZOCOR [Suspect]
     Indication: DYSLIPIDAEMIA
     Route: 048
  2. LOPID [Concomitant]
     Route: 065

REACTIONS (2)
  - MYOCARDIAL INFARCTION [None]
  - MYOPATHY [None]
